FAERS Safety Report 8509145-8 (Version None)
Quarter: 2012Q3

REPORT INFORMATION
  Report Type: 
  Country: None (occurrence: None)
  Receive Date: 20120703
  Receipt Date: 20120628
  Transmission Date: 20120928
  Serious: Yes (Life-Threatening, Hospitalization, Other)
  Sender: FDA-Public Use
  Company Number: FR-JNJFOC-20120614358

PATIENT
  Age: 71 Year
  Sex: Female

DRUGS (2)
  1. DACOGEN (DECITABINE) LYOPHILIZED POWDER [Suspect]
     Indication: PRODUCT USED FOR UNKNOWN INDICATION
     Dosage: INTRAVENOUS
     Route: 042
     Dates: end: 20120625
  2. ISOPTIN [Concomitant]

REACTIONS (7)
  - PULMONARY EMBOLISM [None]
  - CARDIAC FAILURE [None]
  - ARRHYTHMIA [None]
  - RESPIRATORY DISTRESS [None]
  - MALAISE [None]
  - ATRIAL FIBRILLATION [None]
  - CARDIOGENIC SHOCK [None]
